FAERS Safety Report 5086321-0 (Version None)
Quarter: 2006Q3

REPORT INFORMATION
  Report Type: 
  Country: None (occurrence: None)
  Receive Date: 20060823
  Receipt Date: 20060817
  Transmission Date: 20061208
  Serious: Yes (Death, Other)
  Sender: FDA-Public Use
  Company Number: BE-ABBOTT-06P-013-0338412-03

PATIENT
  Sex: Female
  Weight: 90 kg

DRUGS (14)
  1. SIBUTRAMINE [Suspect]
     Indication: OBESITY
     Route: 048
     Dates: start: 20031203
  2. LISINOPRIL [Concomitant]
     Indication: HYPERTENSION
     Dates: start: 20010201, end: 20040824
  3. NOBITEN [Concomitant]
     Indication: HYPERTENSION
     Dates: start: 20040801, end: 20040824
  4. OMEPRAZOLE [Concomitant]
     Indication: DUODENAL ULCER
     Dates: start: 20040801, end: 20040824
  5. YEAST DRIED [Concomitant]
     Indication: DIARRHOEA
     Dates: start: 20040816, end: 20040824
  6. AMLODIPINE BESYLATE [Concomitant]
     Indication: HYPERTENSION
     Dates: start: 20040801, end: 20040824
  7. HEPARIN-FRACTION, CALCIUM SALT [Concomitant]
     Indication: THROMBOSIS PROPHYLAXIS
     Dates: start: 20040601, end: 20040824
  8. MODURETIC 5-50 [Concomitant]
     Indication: HYPERTENSION
     Dates: start: 20040801, end: 20040818
  9. FUROSEMIDE [Concomitant]
     Indication: HYPERTENSION
     Dates: start: 20040813, end: 20040824
  10. CEFUROXIME [Concomitant]
     Indication: DRUG USE FOR UNKNOWN INDICATION
     Dates: end: 20040824
  11. METRONIDAZOLE [Concomitant]
     Indication: DRUG USE FOR UNKNOWN INDICATION
     Dates: start: 20040801, end: 20040824
  12. ACTRAPID [Concomitant]
     Indication: DIABETES MELLITUS
     Dates: start: 19870101, end: 20040824
  13. ALIZAPRIDE [Concomitant]
     Indication: NAUSEA
     Dates: start: 20040801, end: 20040824
  14. ALIZAPRIDE [Concomitant]
     Indication: VOMITING

REACTIONS (1)
  - SUPRAVENTRICULAR TACHYCARDIA [None]
